FAERS Safety Report 5284438-9 (Version None)
Quarter: 2007Q1

REPORT INFORMATION
  Report Type: 
  Country: None (occurrence: None)
  Receive Date: 20070330
  Receipt Date: 20070330
  Transmission Date: 20070707
  Serious: Yes (Hospitalization)
  Sender: FDA-Public Use
  Company Number: None

PATIENT
  Sex: Female
  Weight: 56.6996 kg

DRUGS (1)
  1. SWALLOWED MANGANESE 3MG/15ML [Suspect]
     Indication: LUNG NEOPLASM MALIGNANT
     Dosage: 3MG 2 TIMES A WEEK PO
     Route: 048
     Dates: start: 20070213, end: 20070327

REACTIONS (1)
  - PNEUMONIA [None]
